FAERS Safety Report 23705685 (Version 1)
Quarter: 2024Q2

REPORT INFORMATION
  Report Type: Spontaneous
  Country: PT (occurrence: PT)
  Receive Date: 20240404
  Receipt Date: 20240404
  Transmission Date: 20240716
  Serious: Yes (Hospitalization)
  Sender: FDA-Public Use
  Company Number: PT-AMGEN-PRTSP2024062759

PATIENT
  Age: 63 Year
  Sex: Female

DRUGS (4)
  1. PROLIA [Suspect]
     Active Substance: DENOSUMAB
     Indication: Osteoporosis
     Dosage: 60 MILLIGRAM, Q6MO
     Route: 058
  2. TOCILIZUMAB [Concomitant]
     Active Substance: TOCILIZUMAB
     Indication: End stage renal disease
     Dosage: 8 MILLIGRAM/KILOGRAM, QMO
     Route: 042
  3. SULFASALAZINE [Concomitant]
     Active Substance: SULFASALAZINE
     Indication: End stage renal disease
     Dosage: 1 GRAM, QD
     Route: 065
  4. PREDNISOLONE [Concomitant]
     Active Substance: PREDNISOLONE
     Indication: End stage renal disease
     Dosage: 5 MILLIGRAM, QD
     Route: 065

REACTIONS (7)
  - Hyperphosphataemia [Unknown]
  - Normochromic anaemia [Unknown]
  - Blood parathyroid hormone increased [Unknown]
  - Blood urea increased [Unknown]
  - Red blood cell sedimentation rate increased [Unknown]
  - Arthralgia [Unknown]
  - Hypocalcaemia [Unknown]
